FAERS Safety Report 5365898-1 (Version None)
Quarter: 2007Q2

REPORT INFORMATION
  Report Type: 
  Country: None (occurrence: None)
  Receive Date: 20070621
  Receipt Date: 20070612
  Transmission Date: 20071010
  Serious: Yes (Death)
  Sender: FDA-Public Use
  Company Number: GB-MERCK-0706USA02225

PATIENT
  Age: 72 Year
  Sex: Male

DRUGS (4)
  1. DECADRON [Suspect]
     Indication: MULTIPLE MYELOMA
     Route: 048
  2. CYCLOPHOSPHAMIDE [Concomitant]
     Indication: MULTIPLE MYELOMA
     Route: 065
  3. VINCRISTINE SULFATE [Concomitant]
     Indication: MULTIPLE MYELOMA
     Route: 065
  4. DOXORUBICIN HCL [Concomitant]
     Indication: MULTIPLE MYELOMA
     Route: 065

REACTIONS (2)
  - HYPOGLYCAEMIA [None]
  - MULTIPLE MYELOMA [None]
